FAERS Safety Report 8709162 (Version 2)
Quarter: 2013Q4

REPORT INFORMATION
  Report Type: Spontaneous
  Country: US (occurrence: US)
  Receive Date: 20120806
  Receipt Date: 20131031
  Transmission Date: 20140711
  Serious: No
  Sender: FDA-Public Use
  Company Number: US-009507513-2012SP014287

PATIENT
  Age: 58 Year
  Sex: Female
  Weight: 68.4 kg

DRUGS (3)
  1. CORICIDIN HBP COUGH AND COLD [Suspect]
     Indication: RHINORRHOEA
     Dosage: 1 DF, Q6H
     Route: 048
     Dates: start: 20120226
  2. CORICIDIN HBP COUGH AND COLD [Suspect]
     Indication: MEDICAL OBSERVATION
     Dosage: 1 DF, BID
     Route: 048
     Dates: start: 20120227
  3. DIOVAN [Concomitant]
     Indication: HYPERTENSION
     Dosage: 160 DF, UNKNOWN

REACTIONS (3)
  - Nausea [Recovered/Resolved]
  - Abdominal discomfort [Recovered/Resolved]
  - Diarrhoea [Recovered/Resolved]
